FAERS Safety Report 7636011-2 (Version None)
Quarter: 2011Q3

REPORT INFORMATION
  Report Type: 
  Country: None (occurrence: None)
  Receive Date: 20110726
  Receipt Date: 20110715
  Transmission Date: 20111222
  Serious: Yes (Hospitalization)
  Sender: FDA-Public Use
  Company Number: CA-ROCHE-781024

PATIENT
  Sex: Female
  Weight: 108 kg

DRUGS (7)
  1. DOCETAXEL [Suspect]
     Dosage: TOTAL DOSE:  128 MG. LAST DOSE PRIOR TO SAE 09 SEP 2010.
     Route: 042
     Dates: start: 20100527
  2. TRASTUZUMAB [Suspect]
     Dosage: TOTAL DOSE:  595 MG, DOSAGE FORM: VIALS. LAST DOSE PRIOR SAE 08 APR 2011.
     Route: 042
     Dates: start: 20100527, end: 20110429
  3. BEVACIZUMAB [Suspect]
     Dosage: TOTAL DOSE ADMINISTRED 1490 MG.
     Route: 042
     Dates: start: 20110204
  4. CARBOPLATIN [Suspect]
     Dosage: DOSE: 5 AUC ( TOTAL DOSE ADMINISTRED 1070 MG)
     Route: 042
     Dates: start: 20100909
  5. CARBOPLATIN [Suspect]
     Dosage: DOSAGE FORM VIALS, DOSE LEVEL 5 AUC, TOTAL DOSE: 1070 MG, DATE OF LAST DOSE PRIOR TO SAE:09 SEP 2010
     Route: 042
     Dates: start: 20100527
  6. BEVACIZUMAB [Suspect]
     Dosage: DOASE FORM: VIALS,
     Route: 042
     Dates: start: 20100527, end: 20110204
  7. FENTANYL-100 [Concomitant]
     Dates: start: 20110511

REACTIONS (2)
  - EJECTION FRACTION DECREASED [None]
  - AORTIC VALVE INCOMPETENCE [None]
